FAERS Safety Report 7715494-3 (Version None)
Quarter: 2011Q3

REPORT INFORMATION
  Report Type: 
  Country: None (occurrence: None)
  Receive Date: 20110829
  Receipt Date: 20110819
  Transmission Date: 20111222
  Serious: Yes (Hospitalization)
  Sender: FDA-Public Use
  Company Number: US-JNJFOC-20110809653

PATIENT
  Sex: Female
  Weight: 86.18 kg

DRUGS (1)
  1. RISPERDAL [Suspect]
     Indication: NERVOUSNESS
     Dosage: 3MG- 1 IN MORNING AND 2 IN EVENING
     Route: 048

REACTIONS (5)
  - ULCER HAEMORRHAGE [None]
  - HOSPITALISATION [None]
  - OVERWEIGHT [None]
  - FATIGUE [None]
  - RASH [None]
